FAERS Safety Report 15556841 (Version 2)
Quarter: 2019Q1

REPORT INFORMATION
  Report Type: Spontaneous
  Country: US (occurrence: US)
  Receive Date: 20181026
  Receipt Date: 20190107
  Transmission Date: 20190417
  Serious: Yes (Death)
  Sender: FDA-Public Use
  Company Number: US-LUNDBECK-DKLU2055989

PATIENT
  Age: 81 Year
  Sex: Male

DRUGS (6)
  1. NORTHERA [Suspect]
     Active Substance: DROXIDOPA
     Indication: ACUTE RESPIRATORY FAILURE
     Route: 048
     Dates: start: 20181009
  2. NORTHERA [Suspect]
     Active Substance: DROXIDOPA
     Indication: GAIT DISTURBANCE
  3. NORTHERA [Suspect]
     Active Substance: DROXIDOPA
     Indication: HYPOXIA
  4. NORTHERA [Suspect]
     Active Substance: DROXIDOPA
     Indication: NEUROPSYCHIATRIC SYMPTOMS
  5. NORTHERA [Suspect]
     Active Substance: DROXIDOPA
     Indication: DEMENTIA
  6. NORTHERA [Suspect]
     Active Substance: DROXIDOPA
     Indication: ATRIAL FIBRILLATION

REACTIONS (1)
  - Death [Fatal]

NARRATIVE: CASE EVENT DATE: 20181016
